FAERS Safety Report 11368962 (Version 9)
Quarter: 2015Q4

REPORT INFORMATION
  Report Type: Report from Study
  Country: CA (occurrence: CA)
  Receive Date: 20150812
  Receipt Date: 20151224
  Transmission Date: 20160304
  Serious: Yes (Death, Hospitalization, Other)
  Sender: FDA-Public Use
  Company Number: CA-ROCHE-1586703

PATIENT
  Age: 82 Year
  Sex: Male
  Weight: 72 kg

DRUGS (17)
  1. PREGABALIN. [Concomitant]
     Active Substance: PREGABALIN
  2. RIVASA [Concomitant]
     Active Substance: ASPIRIN
  3. ZOLADEX [Concomitant]
     Active Substance: GOSERELIN ACETATE
  4. OMEPRAZOLE. [Concomitant]
     Active Substance: OMEPRAZOLE
  5. ACTEMRA [Suspect]
     Active Substance: TOCILIZUMAB
     Indication: RHEUMATOID ARTHRITIS
     Dosage: ON HOLD
     Route: 042
     Dates: start: 20150224, end: 20151117
  6. METHOTREXATE [Concomitant]
     Active Substance: METHOTREXATE
  7. ZOPICLONE [Concomitant]
     Active Substance: ZOPICLONE
  8. NIFEDIPINE. [Concomitant]
     Active Substance: NIFEDIPINE
  9. SENNOSIDES. [Concomitant]
     Active Substance: SENNOSIDES
  10. MOMETASONE [Concomitant]
     Active Substance: MOMETASONE
  11. ATORVASTATIN [Concomitant]
     Active Substance: ATORVASTATIN
  12. CALCITE D [Concomitant]
     Active Substance: CALCIUM CARBONATE
  13. FOLIC ACID. [Concomitant]
     Active Substance: FOLIC ACID
  14. ATROVENT [Concomitant]
     Active Substance: IPRATROPIUM BROMIDE
  15. DOCUSATE SODIUM. [Concomitant]
     Active Substance: DOCUSATE SODIUM
  16. BISOPROLOL [Concomitant]
     Active Substance: BISOPROLOL
  17. PREDNISON [Concomitant]
     Active Substance: PREDNISONE

REACTIONS (9)
  - Weight increased [Unknown]
  - Weight decreased [Unknown]
  - Death [Fatal]
  - Blood pressure increased [Recovered/Resolved]
  - Blood pressure increased [Unknown]
  - Oxygen saturation decreased [Unknown]
  - Intestinal obstruction [Unknown]
  - Pneumonia [Unknown]
  - Wound [Not Recovered/Not Resolved]

NARRATIVE: CASE EVENT DATE: 201509
